FAERS Safety Report 4630665-0 (Version None)
Quarter: 2005Q2

REPORT INFORMATION
  Report Type: 
  Country: None (occurrence: None)
  Receive Date: 20050408
  Receipt Date: 20050330
  Transmission Date: 20051028
  Serious: Yes (Hospitalization)
  Sender: FDA-Public Use
  Company Number: ES-SANOFI-SYNTHELABO-F01200500490

PATIENT
  Sex: Male
  Weight: 70.5 kg

DRUGS (6)
  1. OXALIPLATIN [Suspect]
     Indication: COLORECTAL CANCER METASTATIC
     Route: 042
  2. FLUOROURACIL [Suspect]
     Dosage: 5236.50 MG (3000 MG/M2 IN 48 HOURS INFUSION, Q2W)
     Route: 042
  3. OMEPRAZOLE [Concomitant]
     Indication: PROPHYLAXIS AGAINST GASTROINTESTINAL ULCER
     Dosage: 20 MG
     Route: 048
  4. MINODIAB [Concomitant]
     Indication: DIABETES MELLITUS
     Dosage: UNK
     Route: 048
  5. DIANBEN [Concomitant]
     Indication: DIABETES MELLITUS
     Dosage: UNK
     Route: 048
  6. DIUREX [Concomitant]
     Indication: HYPERTENSION
     Dosage: UNK
     Route: 048

REACTIONS (1)
  - ARTHRITIS BACTERIAL [None]
